FAERS Safety Report 12979131 (Version 3)
Quarter: 2016Q4

REPORT INFORMATION
  Report Type: Spontaneous
  Country: CN (occurrence: CN)
  Receive Date: 20161128
  Receipt Date: 20161220
  Transmission Date: 20170207
  Serious: Yes (Hospitalization)
  Sender: FDA-Public Use
  Company Number: CN-GLAXOSMITHKLINE-CN2016GSK173532

PATIENT
  Sex: Female

DRUGS (1)
  1. SERETIDE [Suspect]
     Active Substance: FLUTICASONE PROPIONATE\SALMETEROL XINAFOATE
     Indication: ASTHMA
     Dosage: UNK
     Route: 055
     Dates: start: 20161119

REACTIONS (5)
  - Disease recurrence [Unknown]
  - Drug ineffective [Unknown]
  - Overdose [Unknown]
  - Incorrect dosage administered [Unknown]
  - Product quality issue [Unknown]

NARRATIVE: CASE EVENT DATE: 20161119
